FAERS Safety Report 7070553-6 (Version None)
Quarter: 2010Q4

REPORT INFORMATION
  Report Type: 
  Country: None (occurrence: None)
  Receive Date: 20101029
  Receipt Date: 20101018
  Transmission Date: 20110411
  Serious: Yes (Hospitalization)
  Sender: FDA-Public Use
  Company Number: GB-PFIZER INC-2010050375

PATIENT
  Age: 24 Year
  Sex: Male
  Weight: 80 kg

DRUGS (5)
  1. LYRICA [Suspect]
     Indication: PAIN
     Dosage: 300 MG, 4X/DAY
     Route: 048
     Dates: start: 20100413
  2. LANTUS [Concomitant]
     Dosage: UNK
     Route: 058
  3. SIMVASTATIN [Concomitant]
     Indication: BLOOD CHOLESTEROL INCREASED
     Dosage: 20 MG, 1X/DAY AT NIGHT
     Route: 048
  4. OMEPRAZOLE [Concomitant]
     Dosage: 20 MG, 1X/DAY IN THE MORNING
     Route: 048
  5. CO-DYDRAMOL [Concomitant]
     Indication: PAIN
     Dosage: 10/500, 4X/DAY
     Route: 048

REACTIONS (5)
  - DIABETIC KETOACIDOSIS [None]
  - DIARRHOEA [None]
  - HYPERGLYCAEMIA [None]
  - INCORRECT DOSE ADMINISTERED [None]
  - VOMITING [None]
